FAERS Safety Report 19462141 (Version 2)
Quarter: 2021Q3

REPORT INFORMATION
  Report Type: Spontaneous
  Country: US (occurrence: US)
  Receive Date: 20210625
  Receipt Date: 20210726
  Transmission Date: 20211014
  Serious: No
  Sender: FDA-Public Use
  Company Number: US-PFIZER INC-2021630357

PATIENT
  Age: 4 Year
  Sex: Male
  Weight: 11.79 kg

DRUGS (1)
  1. GENOTROPIN [Suspect]
     Active Substance: SOMATROPIN
     Dosage: 0.4 MG, DAILY
     Dates: start: 20210322

REACTIONS (2)
  - Device use error [Unknown]
  - Drug dose omission by device [Unknown]
